FAERS Safety Report 4506701-9 (Version None)
Quarter: 2004Q4

REPORT INFORMATION
  Report Type: 
  Country: None (occurrence: None)
  Receive Date: 20041117
  Receipt Date: 20041101
  Transmission Date: 20050328
  Serious: Yes (Hospitalization)
  Sender: FDA-Public Use
  Company Number: 203893

PATIENT
  Age: 43 Year
  Sex: Female
  Weight: 81.6475 kg

DRUGS (4)
  1. AVONEX [Suspect]
     Indication: MULTIPLE SCLEROSIS
     Dosage: 30 MCG QW IM
     Route: 030
     Dates: start: 20000101, end: 20030101
  2. AVONEX [Suspect]
     Indication: MULTIPLE SCLEROSIS
     Dosage: 30 MCG QW IM
     Route: 030
     Dates: start: 20030101, end: 20030101
  3. AVONEX [Suspect]
     Indication: MULTIPLE SCLEROSIS
     Dosage: 30 MCG QW IM
     Route: 030
     Dates: start: 20030801
  4. XANAX [Concomitant]

REACTIONS (9)
  - CONDITION AGGRAVATED [None]
  - INFLUENZA LIKE ILLNESS [None]
  - INSOMNIA [None]
  - MULTIPLE SCLEROSIS [None]
  - MUSCLE SPASMS [None]
  - NASOPHARYNGITIS [None]
  - PNEUMONIA [None]
  - UTERINE MASS [None]
  - WEIGHT INCREASED [None]
